FAERS Safety Report 13198582 (Version 1)
Quarter: 2017Q1

REPORT INFORMATION
  Report Type: Spontaneous
  Country: PT (occurrence: PT)
  Receive Date: 20170208
  Receipt Date: 20170208
  Transmission Date: 20170428
  Serious: Yes (Other)
  Sender: FDA-Public Use
  Company Number: PT-UNICHEM LABORATORIES LIMITED-UCM201702-000036

PATIENT
  Age: 61 Year
  Sex: Female

DRUGS (2)
  1. DIVALPROEX SODIUM. [Suspect]
     Active Substance: DIVALPROEX SODIUM
     Indication: DEPRESSION
  2. TOPIRAMATE. [Suspect]
     Active Substance: TOPIRAMATE

REACTIONS (3)
  - Toxic encephalopathy [Unknown]
  - Road traffic accident [Unknown]
  - Adverse event [Unknown]
